FAERS Safety Report 8431575-3 (Version None)
Quarter: 2012Q2

REPORT INFORMATION
  Report Type: 
  Country: None (occurrence: None)
  Receive Date: 20120607
  Receipt Date: 20120607
  Transmission Date: 20120825
  Serious: Yes (Other)
  Sender: FDA-Public Use
  Company Number: None

PATIENT
  Sex: Male
  Weight: 79.3795 kg

DRUGS (1)
  1. PROSCAR [Suspect]
     Indication: ALOPECIA
     Dosage: 1 MG ONCE A DAY ORAL
     Route: 048
     Dates: start: 19970401, end: 20110501

REACTIONS (6)
  - AMNESIA [None]
  - SEXUAL DYSFUNCTION [None]
  - MYALGIA [None]
  - ARTHRALGIA [None]
  - DISTURBANCE IN ATTENTION [None]
  - POOR QUALITY SLEEP [None]
